FAERS Safety Report 8148350-X (Version None)
Quarter: 2012Q1

REPORT INFORMATION
  Report Type: 
  Country: None (occurrence: None)
  Receive Date: 20120218
  Receipt Date: 20110524
  Transmission Date: 20120608
  Serious: No
  Sender: FDA-Public Use
  Company Number: US-ALLERGAN-1107137US

PATIENT
  Age: 24 Year
  Sex: Female

DRUGS (2)
  1. BOTOX COSMETIC [Suspect]
     Indication: SKIN WRINKLING
     Dosage: 32.5 UNITS, SINGLE
     Dates: start: 20110506, end: 20110506
  2. MARIJUANA [Concomitant]
     Indication: PRODUCT USED FOR UNKNOWN INDICATION

REACTIONS (7)
  - SWELLING FACE [None]
  - DRY MOUTH [None]
  - MUSCULOSKELETAL STIFFNESS [None]
  - HEART RATE INCREASED [None]
  - LIP SWELLING [None]
  - DYSPNOEA [None]
  - HEADACHE [None]
